FAERS Safety Report 6468765-5 (Version None)
Quarter: 2009Q4

REPORT INFORMATION
  Report Type: 
  Country: None (occurrence: None)
  Receive Date: 20091202
  Receipt Date: 20091202
  Transmission Date: 20100525
  Serious: Yes (Hospitalization)
  Sender: FDA-Public Use
  Company Number: None

PATIENT
  Age: 65 Year
  Sex: Male
  Weight: 68.5 kg

DRUGS (1)
  1. DALTEPARIN [Suspect]
     Indication: DEEP VEIN THROMBOSIS
     Dosage: 12,500 UNITS EVERYDAY IM
     Route: 030
     Dates: start: 20090819, end: 20091113

REACTIONS (1)
  - HEPARIN-INDUCED THROMBOCYTOPENIA [None]
